FAERS Safety Report 8770204 (Version 2)
Quarter: 2013Q1

REPORT INFORMATION
  Report Type: Spontaneous
  Country: US (occurrence: US)
  Receive Date: 20120906
  Receipt Date: 20130128
  Transmission Date: 20140127
  Serious: Yes (Hospitalization, Other)
  Sender: FDA-Public Use
  Company Number: US-009507513-1209USA001493

PATIENT
  Sex: Female
  Weight: 115.65 kg

DRUGS (1)
  1. NUVARING [Suspect]
     Indication: CONTRACEPTION
     Dosage: UNK
     Route: 067
     Dates: start: 201101, end: 201104

REACTIONS (3)
  - Pulmonary embolism [Unknown]
  - Depression [Unknown]
  - Traumatic lung injury [Unknown]
